FAERS Safety Report 18546673 (Version 9)
Quarter: 2021Q2

REPORT INFORMATION
  Report Type: Spontaneous
  Country: US (occurrence: US)
  Receive Date: 20201125
  Receipt Date: 20210602
  Transmission Date: 20210717
  Serious: No
  Sender: FDA-Public Use
  Company Number: US-BAYER-2020-250879

PATIENT
  Age: 18 Year
  Sex: Male

DRUGS (5)
  1. KOGENATE FS [Suspect]
     Active Substance: ANTIHEMOPHILIC FACTOR, HUMAN RECOMBINANT
     Dosage: 2000 U, ONCE, TO TREAT SWELLING OF FEET
     Dates: start: 202008, end: 202008
  2. KOGENATE FS [Suspect]
     Active Substance: ANTIHEMOPHILIC FACTOR, HUMAN RECOMBINANT
     Dosage: 2000 U, ONCE, TO TREAT STUBBED TOE
     Dates: start: 20210112, end: 20210112
  3. KOGENATE FS [Suspect]
     Active Substance: ANTIHEMOPHILIC FACTOR, HUMAN RECOMBINANT
     Dosage: 2000 U
     Route: 042
  4. KOGENATE FS [Suspect]
     Active Substance: ANTIHEMOPHILIC FACTOR, HUMAN RECOMBINANT
     Dosage: 2000 U, ONCE, THAT NIGHT TO TREAT STUBBED TOE
     Dates: start: 20210110
  5. KOGENATE FS [Suspect]
     Active Substance: ANTIHEMOPHILIC FACTOR, HUMAN RECOMBINANT
     Dosage: TOOK AN EXTRA DOSE EACH TIME BUMPED AS A PRECAUTION
     Route: 042

REACTIONS (7)
  - Product dose omission issue [None]
  - Urticaria [Recovered/Resolved]
  - Injury [Recovered/Resolved]
  - Peripheral swelling [Recovered/Resolved]
  - Limb injury [Recovered/Resolved]
  - Joint injury [Recovered/Resolved]
  - Limb injury [None]

NARRATIVE: CASE EVENT DATE: 202007
